FAERS Safety Report 6407060-7 (Version None)
Quarter: 2009Q4

REPORT INFORMATION
  Report Type: 
  Country: None (occurrence: None)
  Receive Date: 20091020
  Receipt Date: 20091012
  Transmission Date: 20100525
  Serious: Yes (Hospitalization)
  Sender: FDA-Public Use
  Company Number: FR-ROXANE LABORATORIES, INC.-2009-RO-01052RO

PATIENT
  Age: 37 Year
  Sex: Female

DRUGS (9)
  1. LITHIUM CARBONATE [Suspect]
     Indication: DEPRESSION
  2. LITHIUM CARBONATE [Suspect]
     Route: 048
  3. OXCARBAZEPINE [Suspect]
  4. CYAMEMAZINE [Suspect]
  5. ZOPICLONE [Suspect]
  6. GLUCOSE SALINE SOLUTION [Concomitant]
     Indication: FLUID REPLACEMENT
     Route: 042
  7. GLUCOSE SALINE SOLUTION [Concomitant]
     Indication: DRUG TOXICITY
  8. SALINE [Concomitant]
     Indication: FLUID REPLACEMENT
     Route: 042
  9. SALINE [Concomitant]
     Indication: DRUG TOXICITY

REACTIONS (6)
  - DRUG TOXICITY [None]
  - ELECTROCARDIOGRAM QT INTERVAL ABNORMAL [None]
  - HYPOTONIA [None]
  - MIOSIS [None]
  - SEDATION [None]
  - SUICIDE ATTEMPT [None]
